FAERS Safety Report 6479621-0 (Version None)
Quarter: 2009Q4

REPORT INFORMATION
  Report Type: 
  Country: None (occurrence: None)
  Receive Date: 20091207
  Receipt Date: 20091207
  Transmission Date: 20100525
  Serious: Yes (Hospitalization)
  Sender: FDA-Public Use
  Company Number: None

PATIENT
  Sex: Female
  Weight: 88 kg

DRUGS (2)
  1. CISPLATIN [Suspect]
     Dosage: 160 MG
  2. ETOPOSIDE [Suspect]
     Dosage: 600 MG

REACTIONS (17)
  - ACUTE RESPIRATORY DISTRESS SYNDROME [None]
  - ASTHENIA [None]
  - BLOOD CULTURE POSITIVE [None]
  - CARDIAC ARREST [None]
  - CULTURE URINE POSITIVE [None]
  - DIZZINESS [None]
  - ESCHERICHIA INFECTION [None]
  - HEART RATE INCREASED [None]
  - HYPOTENSION [None]
  - LACTIC ACIDOSIS [None]
  - NEUTROPENIA [None]
  - OLIGURIA [None]
  - PNEUMONIA STREPTOCOCCAL [None]
  - RESPIRATORY RATE INCREASED [None]
  - SEPTIC SHOCK [None]
  - SUPRAVENTRICULAR TACHYCARDIA [None]
  - VENTRICULAR HYPOKINESIA [None]
